FAERS Safety Report 6227069-6 (Version None)
Quarter: 2009Q2

REPORT INFORMATION
  Report Type: 
  Country: None (occurrence: None)
  Receive Date: 20090612
  Receipt Date: 20090523
  Transmission Date: 20091009
  Serious: No
  Sender: FDA-Public Use
  Company Number: US-ABBOTT-09P-163-0576325-00

PATIENT
  Sex: Female
  Weight: 55.388 kg

DRUGS (6)
  1. HUMIRA [Suspect]
     Indication: CROHN'S DISEASE
     Route: 058
     Dates: start: 20070101, end: 20090101
  2. HUMIRA [Suspect]
  3. PREDNISONE [Concomitant]
     Indication: CROHN'S DISEASE
  4. OPIUM TINCTURE [Concomitant]
     Indication: CROHN'S DISEASE
  5. FOLIC ACID [Concomitant]
     Indication: CROHN'S DISEASE
  6. VITAMIN TAB [Concomitant]
     Indication: DRUG USE FOR UNKNOWN INDICATION

REACTIONS (4)
  - ABDOMINAL HERNIA [None]
  - ABDOMINAL PAIN UPPER [None]
  - ARTHRALGIA [None]
  - ULCER [None]
